FAERS Safety Report 19532882 (Version 1)
Quarter: 2021Q3

REPORT INFORMATION
  Report Type: Spontaneous
  Country: US (occurrence: US)
  Receive Date: 20210714
  Receipt Date: 20210714
  Transmission Date: 20211014
  Serious: Yes (Life-Threatening, Other)
  Sender: FDA-Public Use
  Company Number: US-AUROBINDO-AUR-APL-2021-029259

PATIENT
  Sex: Female

DRUGS (15)
  1. PRALATREXATE [Suspect]
     Active Substance: PRALATREXATE
     Indication: CUTANEOUS T-CELL LYMPHOMA
     Dosage: UNK
     Route: 065
  2. DENILEUKIN DIFTITOX [Suspect]
     Active Substance: DENILEUKIN DIFTITOX
     Indication: CUTANEOUS T-CELL LYMPHOMA
     Dosage: UNK
     Route: 065
  3. FLUCONAZOLE. [Concomitant]
     Active Substance: FLUCONAZOLE
     Indication: PRODUCT USED FOR UNKNOWN INDICATION
     Dosage: UNK
     Route: 065
  4. PREDNISONE. [Concomitant]
     Active Substance: PREDNISONE
     Indication: ECZEMA
     Dosage: 50 MILLIGRAM, ONCE A DAY
     Route: 065
  5. ADCETRIS [Suspect]
     Active Substance: BRENTUXIMAB VEDOTIN
     Dosage: 1.8 MILLIGRAM/KILOGRAM
     Route: 042
     Dates: start: 20111013
  6. LEVOTHYROXINE SODIUM. [Concomitant]
     Active Substance: LEVOTHYROXINE SODIUM
     Indication: PRODUCT USED FOR UNKNOWN INDICATION
     Dosage: UNK
     Route: 065
  7. INTERFERON ALFA?2B [Suspect]
     Active Substance: INTERFERON ALFA-2B
     Indication: CUTANEOUS T-CELL LYMPHOMA
     Dosage: UNK
     Route: 065
     Dates: start: 20090112
  8. PROCHLORPERAZINE. [Concomitant]
     Active Substance: PROCHLORPERAZINE
     Indication: PRODUCT USED FOR UNKNOWN INDICATION
     Dosage: UNK
     Route: 065
  9. ABILIFY [Concomitant]
     Active Substance: ARIPIPRAZOLE
     Indication: PRODUCT USED FOR UNKNOWN INDICATION
     Dosage: UNK
     Route: 065
  10. INTERFERON GAMMA NOS [Suspect]
     Active Substance: INTERFERON GAMMA
     Indication: CUTANEOUS T-CELL LYMPHOMA
     Dosage: UNK
     Route: 065
  11. METHOTREXATE. [Suspect]
     Active Substance: METHOTREXATE
     Indication: CUTANEOUS T-CELL LYMPHOMA
     Dosage: UNK
     Route: 065
  12. ADCETRIS [Suspect]
     Active Substance: BRENTUXIMAB VEDOTIN
     Indication: ANAPLASTIC LARGE CELL LYMPHOMA T- AND NULL-CELL TYPES STAGE IV
     Dosage: 1.8 MILLIGRAM/KILOGRAM, 21 UNITS IN  ONE DAY
     Route: 042
     Dates: start: 20110919, end: 20111013
  13. DIPHENHYDRAMINE HYDROCHLORIDE;ZINC ACETATE [Concomitant]
     Indication: PRODUCT USED FOR UNKNOWN INDICATION
     Dosage: UNK
     Route: 065
  14. LOPERAMIDE HYDROCHLORIDE;SIMETICONE [Concomitant]
     Active Substance: DIMETHICONE\LOPERAMIDE HYDROCHLORIDE
     Indication: PRODUCT USED FOR UNKNOWN INDICATION
     Dosage: UNK
     Route: 065
  15. BEXAROTENE. [Suspect]
     Active Substance: BEXAROTENE
     Indication: CUTANEOUS T-CELL LYMPHOMA
     Dosage: UNK
     Route: 065

REACTIONS (4)
  - Progressive multifocal leukoencephalopathy [Not Recovered/Not Resolved]
  - Drug ineffective [Recovered/Resolved]
  - Immune reconstitution inflammatory syndrome [Unknown]
  - Eczema [Unknown]

NARRATIVE: CASE EVENT DATE: 201111
